FAERS Safety Report 8183047-1 (Version None)
Quarter: 2012Q1

REPORT INFORMATION
  Report Type: 
  Country: None (occurrence: None)
  Receive Date: 20120305
  Receipt Date: 20120228
  Transmission Date: 20120608
  Serious: Yes (Other)
  Sender: FDA-Public Use
  Company Number: US-AMGEN-USASP2012013285

PATIENT
  Age: 65 Year
  Sex: Male

DRUGS (3)
  1. CYCLOSPORINE [Concomitant]
     Indication: PROPHYLAXIS AGAINST TRANSPLANT REJECTION
     Dosage: UNK
  2. MYCOPHENOLATE MOFETIL [Concomitant]
     Indication: PROPHYLAXIS AGAINST TRANSPLANT REJECTION
     Dosage: UNK
  3. ARANESP [Suspect]
     Indication: RENAL FAILURE CHRONIC
     Dosage: 140 MUG, QWK
     Dates: start: 20110801

REACTIONS (1)
  - THERAPEUTIC RESPONSE DECREASED [None]
